FAERS Safety Report 9766423 (Version 1)
Quarter: 2013Q4

REPORT INFORMATION
  Report Type: Spontaneous
  Country: IT (occurrence: FR)
  Receive Date: 20131217
  Receipt Date: 20131217
  Transmission Date: 20140711
  Serious: Yes (Hospitalization)
  Sender: FDA-Public Use
  Company Number: FR-FRI-1000052223

PATIENT
  Age: 67 Year
  Sex: Male

DRUGS (12)
  1. NEBIVOLOL [Suspect]
     Dosage: 2.5 MG
     Route: 048
     Dates: end: 201311
  2. CORDARONE [Suspect]
     Dates: start: 2012, end: 20130927
  3. IKOREL [Concomitant]
  4. XARELTO [Concomitant]
  5. LASILIX [Concomitant]
  6. OMEPRAZOLE [Concomitant]
  7. STILNOX [Concomitant]
  8. LEXOMIL [Concomitant]
  9. JANUVIA [Concomitant]
  10. IXPRIM [Concomitant]
  11. PARACETAMOL [Concomitant]
  12. FORLAX [Concomitant]

REACTIONS (1)
  - Interstitial lung disease [Recovering/Resolving]
